FAERS Safety Report 21164080 (Version 3)
Quarter: 2023Q2

REPORT INFORMATION
  Report Type: Report from Study
  Country: ZA (occurrence: ZA)
  Receive Date: 20220803
  Receipt Date: 20230623
  Transmission Date: 20230721
  Serious: Yes (Hospitalization, Other)
  Sender: FDA-Public Use
  Company Number: ZA-NOVARTISPH-NVSC2022ZA169992

PATIENT
  Age: 66 Year
  Sex: Female

DRUGS (3)
  1. SIPONIMOD [Suspect]
     Active Substance: SIPONIMOD
     Indication: Secondary progressive multiple sclerosis
     Dosage: UNK, QD DAY 3 (2 X 0.25MG)
     Route: 048
     Dates: start: 20220722
  2. SIPONIMOD [Suspect]
     Active Substance: SIPONIMOD
     Dosage: UNK, QD DAY 5 (5 X 0.25MG)
     Route: 048
  3. SIPONIMOD [Suspect]
     Active Substance: SIPONIMOD
     Dosage: 2 MG, QD
     Route: 048

REACTIONS (6)
  - Electrocardiogram abnormal [Unknown]
  - Malignant melanoma [Unknown]
  - Eye pain [Unknown]
  - Blood pressure increased [Unknown]
  - Feeling abnormal [Recovering/Resolving]
  - Dizziness [Unknown]

NARRATIVE: CASE EVENT DATE: 20220723
